FAERS Safety Report 19180693 (Version 2)
Quarter: 2021Q2

REPORT INFORMATION
  Report Type: Spontaneous
  Country: BR (occurrence: BR)
  Receive Date: 20210426
  Receipt Date: 20210520
  Transmission Date: 20210717
  Serious: Yes (Life-Threatening, Other)
  Sender: FDA-Public Use
  Company Number: NVSC2021BR092848

PATIENT
  Age: 60 Year
  Sex: Female

DRUGS (5)
  1. MORFINA [Concomitant]
     Active Substance: MORPHINE HYDROCHLORIDE
     Indication: PRODUCT USED FOR UNKNOWN INDICATION
     Dosage: UNK
     Route: 065
  2. SUTENT [Concomitant]
     Active Substance: SUNITINIB MALATE
     Indication: PRODUCT USED FOR UNKNOWN INDICATION
     Dosage: 50 MG
     Route: 065
     Dates: start: 2014
  3. VOTRIENT [Suspect]
     Active Substance: PAZOPANIB HYDROCHLORIDE
     Indication: PRODUCT USED FOR UNKNOWN INDICATION
     Dosage: 200 MG
     Route: 065
  4. EVEROLIMUS. [Concomitant]
     Active Substance: EVEROLIMUS
     Indication: PRODUCT USED FOR UNKNOWN INDICATION
     Dosage: UNK
     Route: 065
  5. PARACETAMOL/CODEINE [Concomitant]
     Active Substance: ACETAMINOPHEN\CODEINE PHOSPHATE
     Indication: PRODUCT USED FOR UNKNOWN INDICATION
     Dosage: UNK
     Route: 065

REACTIONS (13)
  - Metastases to spine [Unknown]
  - Wound [Unknown]
  - Vomiting [Unknown]
  - Renal cancer [Unknown]
  - Stomatitis [Unknown]
  - Near death experience [Unknown]
  - Metastases to bone [Unknown]
  - Metastasis [Unknown]
  - Haemorrhoids [Unknown]
  - Diarrhoea [Unknown]
  - Neoplasm malignant [Unknown]
  - Asthenia [Unknown]
  - Pain [Unknown]
